FAERS Safety Report 6711533-7 (Version None)
Quarter: 2010Q2

REPORT INFORMATION
  Report Type: 
  Country: None (occurrence: None)
  Receive Date: 20100505
  Receipt Date: 20100421
  Transmission Date: 20101027
  Serious: Yes (Hospitalization)
  Sender: FDA-Public Use
  Company Number: PHHY2010FR25180

PATIENT
  Age: 82 Year
  Sex: Female

DRUGS (9)
  1. TAREG [Suspect]
     Indication: HYPERTENSION
     Dosage: 80 MG DAILY
  2. METFORMIN HCL [Suspect]
     Indication: TYPE 2 DIABETES MELLITUS
     Dosage: 1700 MG
     Dates: end: 20100208
  3. GLICLAZIDE [Suspect]
     Indication: TYPE 2 DIABETES MELLITUS
     Dosage: 2 DF DAILY
     Dates: end: 20100208
  4. FUROSEMIDE [Suspect]
     Indication: HYPERTENSION
     Dosage: 1 DF DAILY
  5. LOPERAMIDE HCL [Concomitant]
  6. ESCITALOPRAM [Concomitant]
     Indication: DEPRESSION
  7. MIANSERIN HYDROCHLORIDE [Concomitant]
     Indication: DEPRESSION
  8. ALPRAZOLAM [Concomitant]
     Indication: ANXIETY
  9. MEPRONIZINE [Concomitant]
     Indication: INSOMNIA

REACTIONS (3)
  - GENERAL PHYSICAL CONDITION ABNORMAL [None]
  - LUNG DISORDER [None]
  - RENAL FAILURE ACUTE [None]
